FAERS Safety Report 21742094 (Version 1)
Quarter: 2022Q4

REPORT INFORMATION
  Report Type: Report from Study
  Country: DE (occurrence: DE)
  Receive Date: 20221216
  Receipt Date: 20221216
  Transmission Date: 20230113
  Serious: Yes (Disabling)
  Sender: FDA-Public Use
  Company Number: DE-AstraZeneca-2022A344581

PATIENT
  Age: 80 Year
  Sex: Female
  Weight: 100 kg

DRUGS (2)
  1. APIXABAN [Suspect]
     Active Substance: APIXABAN
     Indication: Haemorrhage intracranial
     Dosage: UNK
     Route: 065
  2. ANDEXANET ALFA [Suspect]
     Active Substance: ANDEXANET ALFA
     Indication: Haemorrhage intracranial
     Dosage: UNK
     Route: 042

REACTIONS (1)
  - Ischaemic stroke [Not Recovered/Not Resolved]

NARRATIVE: CASE EVENT DATE: 20221005
